FAERS Safety Report 9175271 (Version 3)
Quarter: 2013Q2

REPORT INFORMATION
  Report Type: Spontaneous
  Country: US (occurrence: US)
  Receive Date: 20130320
  Receipt Date: 20130517
  Transmission Date: 20140414
  Serious: Yes (Hospitalization, Other)
  Sender: FDA-Public Use
  Company Number: US-NAPPMUNDI-USA-2013-0099094

PATIENT
  Age: 46 Year
  Sex: Male

DRUGS (3)
  1. BUTRANS [Suspect]
     Indication: SPINAL OSTEOARTHRITIS
     Dosage: 10 MCG/HR, WEEKLY
     Route: 062
     Dates: start: 20121113, end: 20121201
  2. NARDIL [Concomitant]
     Indication: PRODUCT USED FOR UNKNOWN INDICATION
  3. PROPANOL [Concomitant]
     Indication: PRODUCT USED FOR UNKNOWN INDICATION

REACTIONS (4)
  - Drug ineffective [Unknown]
  - Pneumonia [Unknown]
  - Hypotension [Recovered/Resolved]
  - Dehydration [Unknown]
